FAERS Safety Report 5389714-7 (Version None)
Quarter: 2007Q3

REPORT INFORMATION
  Report Type: 
  Country: None (occurrence: None)
  Receive Date: 20070713
  Receipt Date: 20070704
  Transmission Date: 20080115
  Serious: Yes (Death, Hospitalization)
  Sender: FDA-Public Use
  Company Number: 2007BI014403

PATIENT
  Age: 63 Year
  Sex: Male

DRUGS (3)
  1. ZEVALIN [Suspect]
     Indication: MANTLE CELL LYMPHOMA RECURRENT
     Dosage: 0.4 MCI/KG; 1X; IV
     Route: 042
     Dates: start: 20050318, end: 20050318
  2. RITUXIMAB [Concomitant]
  3. FLUDARA [Concomitant]

REACTIONS (6)
  - ANAEMIA [None]
  - CARDIAC FAILURE [None]
  - DEHYDRATION [None]
  - LOWER GASTROINTESTINAL HAEMORRHAGE [None]
  - PANCYTOPENIA [None]
  - THROMBOCYTOPENIA [None]
